FAERS Safety Report 13528468 (Version 3)
Quarter: 2017Q3

REPORT INFORMATION
  Report Type: Spontaneous
  Country: US (occurrence: US)
  Receive Date: 20170509
  Receipt Date: 20170705
  Transmission Date: 20171127
  Serious: No
  Sender: FDA-Public Use
  Company Number: US-TAIHO ONCOLOGY INC-EU-2017-00737

PATIENT
  Sex: Male

DRUGS (24)
  1. LONSURF [Suspect]
     Active Substance: TIPIRACIL HYDROCHLORIDE\TRIFLURIDINE
     Indication: RECTAL CANCER
  2. ZOFRAN [Concomitant]
     Active Substance: ONDANSETRON HYDROCHLORIDE
     Dosage: AFTER EACH CHEMO, AND EVERY 8 HOURS AS NEEDED
     Route: 048
  3. LANTUS [Concomitant]
     Active Substance: INSULIN GLARGINE
     Dosage: 100 UNIT/ML, 20 UNITS UNDER THE SKIN
     Route: 058
  4. CILOXAN [Concomitant]
     Active Substance: CIPROFLOXACIN HYDROCHLORIDE
     Dosage: INTO AFFECTED EYE
     Route: 047
  5. ISTALOL [Concomitant]
     Active Substance: TIMOLOL MALEATE
     Dosage: INTO BOTH EYES
     Route: 047
  6. COMPAZINE [Concomitant]
     Active Substance: PROCHLORPERAZINE MALEATE
     Indication: VOMITING
  7. NOVOLOG [Concomitant]
     Active Substance: INSULIN ASPART
     Dosage: 100 UNIT/ML 0-16 UNITS UNDER THE SKIN BEFORE MEALS
     Route: 058
  8. CATAPRES [Concomitant]
     Active Substance: CLONIDINE HYDROCHLORIDE
     Route: 048
  9. GLUCAGON. [Concomitant]
     Active Substance: GLUCAGON
     Indication: BLOOD GLUCOSE DECREASED
  10. LASIX [Concomitant]
     Active Substance: FUROSEMIDE
     Route: 048
  11. FLOMAX [Concomitant]
     Active Substance: TAMSULOSIN HYDROCHLORIDE
     Route: 048
  12. ADVIL [Concomitant]
     Active Substance: IBUPROFEN
     Dosage: AS NEEDED
     Route: 048
  13. ZANAFLEX [Concomitant]
     Active Substance: TIZANIDINE HYDROCHLORIDE
     Dosage: AS NEEDED
     Route: 048
  14. NORCO [Concomitant]
     Active Substance: ACETAMINOPHEN\HYDROCODONE BITARTRATE
     Dosage: 5-325MG, 1-2 TABLETS AS NEEDED
     Route: 048
  15. NORVASC [Concomitant]
     Active Substance: AMLODIPINE BESYLATE
     Route: 048
  16. MAGNESIUM [Concomitant]
     Active Substance: MAGNESIUM
     Route: 048
  17. LONSURF [Suspect]
     Active Substance: TIPIRACIL HYDROCHLORIDE\TRIFLURIDINE
     Indication: COLON CANCER
     Route: 048
     Dates: start: 20170217, end: 20170523
  18. ZOFRAN [Concomitant]
     Active Substance: ONDANSETRON HYDROCHLORIDE
     Dosage: AS NEEDED
     Route: 048
  19. GLUCOTROL [Concomitant]
     Active Substance: GLIPIZIDE
     Route: 048
  20. LOMOTIL [Concomitant]
     Active Substance: ATROPINE SULFATE\DIPHENOXYLATE HYDROCHLORIDE
     Indication: DIARRHOEA
     Dosage: 2.5-0.025MG, 1 TABLET EVERY 4-6HRS
  21. THERA-M [Concomitant]
     Route: 048
  22. COMPAZINE [Concomitant]
     Active Substance: PROCHLORPERAZINE MALEATE
     Indication: NAUSEA
     Dosage: 1 TABLET EVERY 4-6 HOURS
     Route: 048
  23. OCUFEN [Concomitant]
     Active Substance: FLURBIPROFEN SODIUM
     Dosage: INTO BOTH EYES AT BEDTIME [EACH EYE]
     Route: 047
  24. NORMODYNE [Concomitant]
     Active Substance: LABETALOL HYDROCHLORIDE
     Route: 048

REACTIONS (1)
  - Disease progression [Unknown]

NARRATIVE: CASE EVENT DATE: 2017
